FAERS Safety Report 17674827 (Version 1)
Quarter: 2020Q2

REPORT INFORMATION
  Report Type: Spontaneous
  Country: US (occurrence: US)
  Receive Date: 20200416
  Receipt Date: 20200416
  Transmission Date: 20200714
  Serious: No
  Sender: FDA-Public Use
  Company Number: US-MYLANLABS-2020M1038067

PATIENT
  Sex: Female
  Weight: 73 kg

DRUGS (1)
  1. EPINEPHRINE INJECTION USP AUTO-INJECTOR [Suspect]
     Active Substance: EPINEPHRINE
     Indication: DRUG HYPERSENSITIVITY
     Dosage: UNK UNK, PRN (AS NEEDED)
     Route: 030

REACTIONS (1)
  - Device failure [Recovered/Resolved]
